FAERS Safety Report 5749226-5 (Version None)
Quarter: 2008Q2

REPORT INFORMATION
  Report Type: 
  Country: None (occurrence: None)
  Receive Date: 20080527
  Receipt Date: 20080516
  Transmission Date: 20081010
  Serious: Yes (Hospitalization)
  Sender: FDA-Public Use
  Company Number: FR-AMGEN-UK280995

PATIENT
  Sex: Female

DRUGS (8)
  1. NEULASTA [Suspect]
     Indication: CHEMOTHERAPY
     Dates: start: 20080304
  2. FOLIC ACID [Concomitant]
  3. RIVOTRIL [Concomitant]
  4. DOMPERIDONE [Concomitant]
  5. POTASSIUM CHLORIDE [Concomitant]
  6. PRAZEPAM [Concomitant]
  7. NAVELBINE [Concomitant]
     Dates: start: 20071219
  8. VENOFER [Concomitant]

REACTIONS (3)
  - DRUG INEFFECTIVE [None]
  - FEBRILE BONE MARROW APLASIA [None]
  - INFECTION [None]
